FAERS Safety Report 4649228-6 (Version None)
Quarter: 2005Q2

REPORT INFORMATION
  Report Type: 
  Country: None (occurrence: None)
  Receive Date: 20050429
  Receipt Date: 20050420
  Transmission Date: 20051028
  Serious: Yes (Other)
  Sender: FDA-Public Use
  Company Number: US-BRISTOL-MYERS SQUIBB COMPANY-12940342

PATIENT
  Age: 67 Year
  Sex: Female

DRUGS (3)
  1. CISPLATIN [Suspect]
     Indication: METASTATIC SQUAMOUS CELL CARCINOMA
     Dosage: 1ST DOSE: 29NOV2000
     Route: 042
     Dates: start: 20010518, end: 20010518
  2. CETUXIMAB [Suspect]
     Indication: METASTATIC SQUAMOUS CELL CARCINOMA
     Dosage: DOSING: ML/M2 1ST DOSE: 29NOV2000
     Route: 042
     Dates: start: 20010518, end: 20010518
  3. PLACEBO [Suspect]
     Indication: METASTATIC SQUAMOUS CELL CARCINOMA
     Dosage: 1ST DOSE: 29NOV2000
     Route: 042
     Dates: start: 20010518, end: 20010518

REACTIONS (2)
  - EMBOLISM [None]
  - THROMBOSIS [None]
